FAERS Safety Report 21323023 (Version 2)
Quarter: 2022Q4

REPORT INFORMATION
  Report Type: Spontaneous
  Country: US (occurrence: US)
  Receive Date: 20220912
  Receipt Date: 20221118
  Transmission Date: 20230113
  Serious: Yes (Other)
  Sender: FDA-Public Use
  Company Number: US-JNJFOC-20220917967

PATIENT
  Age: 40 Year
  Sex: Female

DRUGS (4)
  1. ELMIRON [Suspect]
     Active Substance: PENTOSAN POLYSULFATE SODIUM
     Indication: Cystitis interstitial
     Route: 048
     Dates: start: 19980623, end: 20070121
  2. MACRODANTIN [Concomitant]
     Active Substance: NITROFURANTOIN
     Indication: Bladder disorder
     Dates: start: 19980208
  3. ATROPA BELLADONNA\HOMEOPATHICS [Concomitant]
     Active Substance: ATROPA BELLADONNA\HOMEOPATHICS
     Indication: Bladder disorder
     Dates: start: 19980208
  4. ATROPA BELLADONNA\HOMEOPATHICS [Concomitant]
     Active Substance: ATROPA BELLADONNA\HOMEOPATHICS
     Indication: Gastric disorder

REACTIONS (2)
  - Retinal pigmentation [Unknown]
  - Off label use [Unknown]

NARRATIVE: CASE EVENT DATE: 19980623
